FAERS Safety Report 25204900 (Version 1)
Quarter: 2025Q2

REPORT INFORMATION
  Report Type: Report from Study
  Country: US (occurrence: US)
  Receive Date: 20250416
  Receipt Date: 20250416
  Transmission Date: 20250717
  Serious: Yes (Other)
  Sender: TAKEDA
  Company Number: US-TAKEDA-2025TUS009501

PATIENT
  Sex: Male

DRUGS (10)
  1. FRUQUINTINIB [Suspect]
     Active Substance: FRUQUINTINIB
     Indication: Colon cancer
  2. FRUQUINTINIB [Suspect]
     Active Substance: FRUQUINTINIB
  3. DOXYCYCLINE [Concomitant]
     Active Substance: DOXYCYCLINE
  4. FAMOTIDINE [Concomitant]
     Active Substance: FAMOTIDINE
  5. LEVOTHYROXINE [Concomitant]
     Active Substance: LEVOTHYROXINE
  6. LORAZEPAM [Concomitant]
     Active Substance: LORAZEPAM
  7. PROCHLORPERAZINE [Concomitant]
     Active Substance: PROCHLORPERAZINE
  8. DEXAMETHASONE SODIUM PHOSPHATE [Concomitant]
     Active Substance: DEXAMETHASONE SODIUM PHOSPHATE
  9. CLINDAMYCIN AND BENZOYL PEROXIDE [Concomitant]
     Active Substance: BENZOYL PEROXIDE\CLINDAMYCIN PHOSPHATE
  10. TYLENOL [Concomitant]
     Active Substance: ACETAMINOPHEN

REACTIONS (5)
  - Colon cancer [Unknown]
  - Anxiety [Not Recovered/Not Resolved]
  - Drug ineffective [Unknown]
  - Headache [Unknown]
  - Nausea [Unknown]
